FAERS Safety Report 9335006 (Version 2)
Quarter: 2013Q2

REPORT INFORMATION
  Report Type: Spontaneous
  Country: ES (occurrence: ES)
  Receive Date: 20130606
  Receipt Date: 20130610
  Transmission Date: 20140414
  Serious: Yes (Other)
  Sender: FDA-Public Use
  Company Number: PHHY2013ES056044

PATIENT
  Age: 42 Year
  Sex: Female

DRUGS (2)
  1. AMOXICILLIN SANDOZ [Suspect]
     Indication: INFECTION PROPHYLAXIS
     Dosage: 1 DF, DAILY
     Route: 048
     Dates: start: 20130530, end: 20130530
  2. IBUPROFEN [Concomitant]
     Indication: INFLAMMATION
     Dosage: 1 DF, UNK

REACTIONS (6)
  - Adnexa uteri pain [Recovered/Resolved]
  - Drug hypersensitivity [Unknown]
  - Pruritus generalised [Recovered/Resolved]
  - Skin disorder [Recovered/Resolved]
  - Vomiting [Recovered/Resolved]
  - Urticaria [Recovered/Resolved]
